FAERS Safety Report 7895825-4 (Version None)
Quarter: 2011Q4

REPORT INFORMATION
  Report Type: 
  Country: None (occurrence: None)
  Receive Date: 20111106
  Receipt Date: 20110831
  Transmission Date: 20120403
  Serious: No
  Sender: FDA-Public Use
  Company Number: US-AMGEN-USASP2011044791

PATIENT
  Age: 69 Year
  Sex: Female
  Weight: 70.295 kg

DRUGS (14)
  1. PROAIR HFA [Concomitant]
  2. ADVAIR HFA [Concomitant]
     Dosage: UNK
  3. METHOTREXATE [Concomitant]
  4. SIMVASTATIN [Concomitant]
  5. NITROGLYCERIN [Concomitant]
  6. CARISOPRODOL [Concomitant]
  7. ZYRTEC [Concomitant]
  8. PRILOSEC [Concomitant]
  9. ENBREL [Suspect]
     Indication: PRODUCT USED FOR UNKNOWN INDICATION
     Dosage: 50 MG, QWK
  10. TERBUTALINE [Concomitant]
  11. OXYCODONE HCL [Concomitant]
  12. OXYCONTIN DAINIPPO [Concomitant]
  13. VERAPAMIL [Concomitant]
  14. VITAMIN D [Concomitant]

REACTIONS (1)
  - FATIGUE [None]
